FAERS Safety Report 8194302-3 (Version None)
Quarter: 2012Q1

REPORT INFORMATION
  Report Type: 
  Country: None (occurrence: None)
  Receive Date: 20120308
  Receipt Date: 20120306
  Transmission Date: 20120608
  Serious: No
  Sender: FDA-Public Use
  Company Number: US-PFIZER INC-2012060164

PATIENT
  Sex: Male
  Weight: 56.236 kg

DRUGS (1)
  1. GENOTROPIN [Suspect]
     Indication: GROWTH RETARDATION
     Dosage: 3 MG, 1X/DAY
     Route: 058
     Dates: start: 20120301

REACTIONS (1)
  - INJECTION SITE PAIN [None]
